FAERS Safety Report 13326512 (Version 1)
Quarter: 2017Q1

REPORT INFORMATION
  Report Type: Spontaneous
  Country: DE (occurrence: DE)
  Receive Date: 20170308
  Receipt Date: 20170308
  Transmission Date: 20170428
  Serious: Yes (Other)
  Sender: FDA-Public Use
  Company Number: PHHY2017DE033084

PATIENT

DRUGS (2)
  1. EVEROLIMUS [Suspect]
     Active Substance: EVEROLIMUS
     Indication: LIVER TRANSPLANT
     Dosage: 3 UG/L
     Route: 065
  2. EVEROLIMUS [Suspect]
     Active Substance: EVEROLIMUS
     Dosage: (7-10?G/L)
     Route: 065

REACTIONS (4)
  - Product use issue [Unknown]
  - Transaminases increased [Recovered/Resolved]
  - Tonsillar inflammation [Unknown]
  - Liver transplant rejection [Unknown]
